FAERS Safety Report 4508272-X (Version None)
Quarter: 2004Q4

REPORT INFORMATION
  Report Type: 
  Country: None (occurrence: None)
  Receive Date: 20041123
  Receipt Date: 20031211
  Transmission Date: 20050328
  Serious: No
  Sender: FDA-Public Use
  Company Number: US-GLAXOSMITHKLINE-A0442772A

PATIENT
  Age: 31 Year
  Sex: Female

DRUGS (3)
  1. WELLBUTRIN [Suspect]
     Indication: DEPRESSION
     Dosage: 150MG TWICE PER DAY
     Route: 048
     Dates: start: 20031120, end: 20031210
  2. VALIUM [Concomitant]
  3. VICODIN [Concomitant]

REACTIONS (3)
  - CONFUSIONAL STATE [None]
  - INSOMNIA [None]
  - IRRITABILITY [None]
